FAERS Safety Report 9842750 (Version 1)
Quarter: 2013Q4

REPORT INFORMATION
  Report Type: Spontaneous
  Country: US (occurrence: None)
  Receive Date: 20131223
  Receipt Date: 20131223
  Transmission Date: 20140711
  Serious: No
  Sender: FDA-Public Use
  Company Number: 218515LEO

PATIENT
  Age: 49 Year
  Sex: Female
  Weight: 275 kg

DRUGS (4)
  1. PICATO [Suspect]
     Indication: ACTINIC KERATOSIS
     Dosage: 1 IN 1 D, TOPICAL
     Route: 061
  2. ALDERA (IMIQUIMOD) [Concomitant]
  3. ZYCLARA (IMIQUIMOD) [Concomitant]
  4. EFUDEX (FLUOROURACIL) [Concomitant]

REACTIONS (4)
  - Application site pustules [None]
  - Application site discharge [None]
  - Application site erythema [None]
  - Application site pain [None]
